FAERS Safety Report 4523687-1 (Version None)
Quarter: 2004Q4

REPORT INFORMATION
  Report Type: 
  Country: None (occurrence: None)
  Receive Date: 20041210
  Receipt Date: 20040825
  Transmission Date: 20050328
  Serious: Yes (Death, Life-Threatening)
  Sender: FDA-Public Use
  Company Number: JP-GLAXOSMITHKLINE-B0343895A

PATIENT
  Age: 78 Year
  Sex: Female

DRUGS (9)
  1. PAXIL [Suspect]
     Indication: MAJOR DEPRESSION
     Route: 048
     Dates: start: 20040722, end: 20040802
  2. RIFADIN [Suspect]
     Indication: ATYPICAL MYCOBACTERIAL INFECTION
     Dosage: 300MG PER DAY
     Route: 048
  3. ISCOTIN [Suspect]
     Indication: ATYPICAL MYCOBACTERIAL INFECTION
     Route: 048
  4. ULGUT [Concomitant]
     Indication: GASTRITIS
     Dosage: 800MG PER DAY
     Route: 048
  5. MUCODYNE [Concomitant]
     Indication: PRODUCTIVE COUGH
     Dosage: 1500MG PER DAY
     Route: 048
  6. PYDOXAL [Concomitant]
     Indication: NEUROPATHY PERIPHERAL
     Dosage: 90MG PER DAY
     Route: 048
  7. DOGMATYL [Concomitant]
     Route: 065
  8. CYANOCOBALAMIN [Concomitant]
     Indication: NEUROPATHY PERIPHERAL
     Dosage: 1500MCG PER DAY
     Route: 048
  9. MODACIN [Concomitant]
     Indication: PNEUMONIA
     Dosage: 2G PER DAY
     Route: 042
     Dates: start: 20040802

REACTIONS (3)
  - HYPONATRAEMIA [None]
  - INAPPROPRIATE ANTIDIURETIC HORMONE SECRETION [None]
  - SOMNOLENCE [None]
